FAERS Safety Report 21466678 (Version 1)
Quarter: 2022Q4

REPORT INFORMATION
  Report Type: Report from Study
  Country: US (occurrence: US)
  Receive Date: 20221017
  Receipt Date: 20221017
  Transmission Date: 20230113
  Serious: Yes (Other)
  Sender: FDA-Public Use
  Company Number: US-BoehringerIngelheim-2022-BI-146600

PATIENT
  Age: 77 Year
  Sex: Male

DRUGS (3)
  1. OFEV [Suspect]
     Active Substance: NINTEDANIB
     Indication: Idiopathic pulmonary fibrosis
     Route: 048
     Dates: start: 202112
  2. OFEV [Suspect]
     Active Substance: NINTEDANIB
     Indication: Interstitial lung disease
     Route: 048
     Dates: start: 20220103, end: 20220319
  3. OFEV [Suspect]
     Active Substance: NINTEDANIB
     Route: 048
     Dates: start: 20220512

REACTIONS (19)
  - Idiopathic pulmonary fibrosis [Not Recovered/Not Resolved]
  - Diarrhoea [Recovered/Resolved]
  - Haematochezia [Not Recovered/Not Resolved]
  - Productive cough [Not Recovered/Not Resolved]
  - Feeling abnormal [Not Recovered/Not Resolved]
  - Diarrhoea [Not Recovered/Not Resolved]
  - Fatigue [Not Recovered/Not Resolved]
  - Asthenia [Not Recovered/Not Resolved]
  - Diarrhoea [Recovered/Resolved with Sequelae]
  - Gastroenteritis viral [Recovered/Resolved]
  - Vomiting [Unknown]
  - Flatulence [Not Recovered/Not Resolved]
  - Abdominal distension [Not Recovered/Not Resolved]
  - Nausea [Not Recovered/Not Resolved]
  - Drug ineffective [Not Recovered/Not Resolved]
  - Gastric pH decreased [Recovering/Resolving]
  - Illness [Recovering/Resolving]
  - Faeces hard [Not Recovered/Not Resolved]
  - Faeces soft [Unknown]

NARRATIVE: CASE EVENT DATE: 20220319
